FAERS Safety Report 24804385 (Version 1)
Quarter: 2025Q1

REPORT INFORMATION
  Report Type: Spontaneous
  Country: US (occurrence: None)
  Receive Date: 20250102
  Receipt Date: 20250102
  Transmission Date: 20250409
  Serious: Yes (Hospitalization)
  Sender: FDA-CTU
  Company Number: None

PATIENT
  Age: 48 Year
  Sex: Female
  Weight: 101.7 kg

DRUGS (5)
  1. FENTANYL [Suspect]
     Active Substance: FENTANYL
     Indication: Pain
     Route: 040
     Dates: start: 20241118, end: 20241118
  2. HYDROMORPHONE [Suspect]
     Active Substance: HYDROMORPHONE
     Indication: Pain
     Route: 040
     Dates: start: 20241118, end: 20241118
  3. OXYCODONE [Suspect]
     Active Substance: OXYCODONE
     Dates: start: 20241118, end: 20241118
  4. MIDAZOLAM [Suspect]
     Active Substance: MIDAZOLAM
     Dates: start: 20241118, end: 20241118
  5. PROPOFOL [Suspect]
     Active Substance: PROPOFOL
     Dates: start: 20241118, end: 20241118

REACTIONS (2)
  - Inadequate analgesia [None]
  - Oxygen saturation decreased [None]

NARRATIVE: CASE EVENT DATE: 20241118
